FAERS Safety Report 20962150 (Version 11)
Quarter: 2022Q3

REPORT INFORMATION
  Report Type: Spontaneous
  Country: US (occurrence: US)
  Receive Date: 20220615
  Receipt Date: 20220930
  Transmission Date: 20221027
  Serious: No
  Sender: FDA-Public Use
  Company Number: US-UNITED THERAPEUTICS-UNT-2022-012968

PATIENT
  Sex: Male
  Weight: 70.295 kg

DRUGS (10)
  1. TYVASO [Suspect]
     Active Substance: TREPROSTINIL
     Indication: Pulmonary arterial hypertension
     Dosage: UNK
     Dates: start: 20220518
  2. TYVASO [Suspect]
     Active Substance: TREPROSTINIL
     Dosage: 18-90 ?G, QID
     Dates: start: 2022
  3. TYVASO [Suspect]
     Active Substance: TREPROSTINIL
     Dosage: UNK
     Dates: start: 2022
  4. TYVASO [Suspect]
     Active Substance: TREPROSTINIL
     Dosage: 72 ?G, QID
     Dates: start: 2022
  5. TYVASO [Suspect]
     Active Substance: TREPROSTINIL
     Dosage: 48 ?G, QID
     Dates: start: 2022
  6. TYVASO [Suspect]
     Active Substance: TREPROSTINIL
     Dosage: 18 ?G, QID
     Dates: start: 2022
  7. TYVASO [Suspect]
     Active Substance: TREPROSTINIL
     Dosage: 84 ?G, QID
     Dates: start: 2022
  8. TYVASO [Suspect]
     Active Substance: TREPROSTINIL
     Dosage: 78 ?G, QID
     Dates: start: 2022
  9. TYVASO [Suspect]
     Active Substance: TREPROSTINIL
     Dosage: 78 ?G, QID
     Dates: start: 2022
  10. OFEV [Concomitant]
     Active Substance: NINTEDANIB
     Indication: Product used for unknown indication
     Dosage: UNK
     Route: 065

REACTIONS (7)
  - Cough [Not Recovered/Not Resolved]
  - Nausea [Unknown]
  - Flushing [Unknown]
  - Haemoptysis [Not Recovered/Not Resolved]
  - Wrong technique in device usage process [Unknown]
  - Sneezing [Unknown]
  - Off label use [Unknown]

NARRATIVE: CASE EVENT DATE: 20220101
